FAERS Safety Report 8282601-6 (Version None)
Quarter: 2012Q2

REPORT INFORMATION
  Report Type: 
  Country: None (occurrence: None)
  Receive Date: 20120413
  Receipt Date: 20120406
  Transmission Date: 20120825
  Serious: Yes (Hospitalization)
  Sender: FDA-Public Use
  Company Number: SE-SANOFI-AVENTIS-2012SA024623

PATIENT
  Age: 13 Year
  Sex: Female

DRUGS (2)
  1. ZOLPIDEM TARTRATE [Suspect]
     Indication: OFF LABEL USE
     Route: 048
     Dates: start: 20120301, end: 20120301
  2. ZOLPIDEM TARTRATE [Suspect]
     Dosage: INJECTION NOS.
     Route: 065
     Dates: start: 20120301, end: 20120301

REACTIONS (2)
  - OFF LABEL USE [None]
  - VICTIM OF SEXUAL ABUSE [None]
